FAERS Safety Report 12188508 (Version 1)
Quarter: 2016Q1

REPORT INFORMATION
  Report Type: Spontaneous
  Country: US (occurrence: US)
  Receive Date: 20160317
  Receipt Date: 20160317
  Transmission Date: 20160526
  Serious: No
  Sender: FDA-Public Use
  Company Number: US-WARNER CHILCOTT, LLC-1049268

PATIENT
  Age: 56 Year
  Sex: Female

DRUGS (6)
  1. ESTRACE [Suspect]
     Active Substance: ESTRADIOL
     Indication: HORMONE REPLACEMENT THERAPY
     Route: 067
     Dates: start: 201505
  2. PROGESTERONE. [Concomitant]
     Active Substance: PROGESTERONE
  3. ZITHROMAX UNO [Concomitant]
     Dates: start: 201506
  4. MULTIVIT [Concomitant]
     Active Substance: VITAMINS
  5. DHEA [Concomitant]
     Active Substance: PRASTERONE
  6. ESTRADIOL. [Concomitant]
     Active Substance: ESTRADIOL

REACTIONS (1)
  - Application site discharge [Unknown]

NARRATIVE: CASE EVENT DATE: 20150609
